FAERS Safety Report 4559968-5 (Version None)
Quarter: 2005Q1

REPORT INFORMATION
  Report Type: 
  Country: None (occurrence: None)
  Receive Date: 20050120
  Receipt Date: 20050120
  Transmission Date: 20050727
  Serious: Yes (Other)
  Sender: FDA-Public Use
  Company Number: None

PATIENT
  Sex: Male

DRUGS (2)
  1. DEXTROAMPHETAMINE MIXED [Suspect]
     Indication: ATTENTION DEFICIT/HYPERACTIVITY DISORDER
     Dosage: 10-40 MG
     Dates: start: 20011101, end: 20020501
  2. ... [Suspect]
     Dates: start: 20040901, end: 20041001

REACTIONS (2)
  - AFFECTIVE DISORDER [None]
  - HEADACHE [None]
